FAERS Safety Report 4714685-3 (Version None)
Quarter: 2005Q3

REPORT INFORMATION
  Report Type: 
  Country: None (occurrence: None)
  Receive Date: 20050714
  Receipt Date: 20050714
  Transmission Date: 20060218
  Serious: Yes (Life-Threatening)
  Sender: FDA-Public Use
  Company Number: None

PATIENT
  Age: 78 Year
  Sex: Male

DRUGS (1)
  1. CEFAZOLIN [Suspect]
     Dosage: 1 GM 1X IV
     Route: 042

REACTIONS (2)
  - ANAPHYLACTIC REACTION [None]
  - SHOCK [None]
